FAERS Safety Report 17722054 (Version 6)
Quarter: 2020Q2

REPORT INFORMATION
  Report Type: Spontaneous
  Country: CA (occurrence: CA)
  Receive Date: 20200429
  Receipt Date: 20200626
  Transmission Date: 20200714
  Serious: Yes (Other)
  Sender: FDA-Public Use
  Company Number: CA-CELLTRION INC.-2020CA020891

PATIENT

DRUGS (6)
  1. INFLECTRA [Suspect]
     Active Substance: INFLIXIMAB-DYYB
     Indication: CROHN^S DISEASE
     Dosage: 400 MG AT 0, 2, 6 WEEKS,THEN EVERY 8 WEEKS
     Route: 042
     Dates: start: 20200323
  2. INFLECTRA [Suspect]
     Active Substance: INFLIXIMAB-DYYB
     Dosage: 10 MG/KG
     Route: 042
     Dates: start: 20200506
  3. INFLECTRA [Suspect]
     Active Substance: INFLIXIMAB-DYYB
     Indication: COLITIS ULCERATIVE
     Dosage: 400 MG AT 0, 2, 6 WEEKS, THEN EVERY 8 WEEKS
     Route: 042
     Dates: start: 20200305, end: 20200305
  4. PREDNISONE. [Concomitant]
     Active Substance: PREDNISONE
     Dosage: 40 MG, UNK
  5. AZATHIOPRINE. [Concomitant]
     Active Substance: AZATHIOPRINE
     Dosage: UNK
  6. IMODIUM [Concomitant]
     Active Substance: LOPERAMIDE HYDROCHLORIDE
     Dosage: 1 OD (ONCE DAILY)/EVERY MORNING
     Dates: start: 202004

REACTIONS (22)
  - Diarrhoea [Unknown]
  - Squamous cell carcinoma [Unknown]
  - Body temperature increased [Unknown]
  - Condition aggravated [Unknown]
  - Dizziness [Unknown]
  - Off label use [Unknown]
  - Product use issue [Unknown]
  - Blood pressure fluctuation [Unknown]
  - Feeling abnormal [Unknown]
  - Vomiting [Recovered/Resolved]
  - Inappropriate schedule of product administration [Unknown]
  - Product administration error [Unknown]
  - Constipation [Unknown]
  - Faecal calprotectin increased [Unknown]
  - Gait disturbance [Unknown]
  - Blister [Unknown]
  - Fatigue [Unknown]
  - Haematochezia [Unknown]
  - Erythema [Unknown]
  - Pallor [Unknown]
  - C-reactive protein increased [Unknown]
  - Nausea [Unknown]

NARRATIVE: CASE EVENT DATE: 20200323
